FAERS Safety Report 18504175 (Version 1)
Quarter: 2020Q4

REPORT INFORMATION
  Report Type: Report from Study
  Country: CA (occurrence: CA)
  Receive Date: 20201113
  Receipt Date: 20201113
  Transmission Date: 20210114
  Serious: Yes (Hospitalization)
  Sender: FDA-Public Use
  Company Number: CA-JNJFOC-20170501442

PATIENT
  Age: 33 Year
  Sex: Female

DRUGS (4)
  1. CELEBREX [Concomitant]
     Active Substance: CELECOXIB
     Dosage: AS NEEDED
     Route: 065
  2. SOLU-MEDROL [Concomitant]
     Active Substance: METHYLPREDNISOLONE SODIUM SUCCINATE
     Dosage: SOLU MEDROL IV DURING HOSPITALIZATION.
     Route: 042
  3. SIMPONI [Suspect]
     Active Substance: GOLIMUMAB
     Indication: ANKYLOSING SPONDYLITIS
     Route: 058
     Dates: start: 20150810
  4. SOLU-MEDROL [Concomitant]
     Active Substance: METHYLPREDNISOLONE SODIUM SUCCINATE
     Dosage: CAPS AT HOME
     Route: 065

REACTIONS (6)
  - Tooth disorder [Unknown]
  - Product dose omission issue [Unknown]
  - Optic neuritis [Recovering/Resolving]
  - Gastroenteritis [Unknown]
  - Tooth fracture [Unknown]
  - Adverse event [Unknown]

NARRATIVE: CASE EVENT DATE: 2017
